FAERS Safety Report 16931597 (Version 2)
Quarter: 2020Q4

REPORT INFORMATION
  Report Type: Spontaneous
  Country: BR (occurrence: BR)
  Receive Date: 20191017
  Receipt Date: 20201007
  Transmission Date: 20210113
  Serious: Yes (Other)
  Sender: FDA-Public Use
  Company Number: BR-REGENERON PHARMACEUTICALS, INC.-2019-58770

PATIENT

DRUGS (2)
  1. EYLEA [Suspect]
     Active Substance: AFLIBERCEPT
     Indication: RETINAL VEIN OCCLUSION
     Dosage: UNK (TOTAL OF 10 INJECTIONS)
  2. EYLEA [Suspect]
     Active Substance: AFLIBERCEPT
     Dosage: 1 DF, ONCE (LAST INJECTION)
     Dates: start: 20191002, end: 20191002

REACTIONS (5)
  - Anterior chamber disorder [Recovering/Resolving]
  - Vitreous opacities [Recovering/Resolving]
  - Multiple use of single-use product [Unknown]
  - Uveitis [Recovering/Resolving]
  - Visual impairment [Recovering/Resolving]

NARRATIVE: CASE EVENT DATE: 20191002
